FAERS Safety Report 21965127 (Version 1)
Quarter: 2023Q1

REPORT INFORMATION
  Report Type: Report from Study
  Country: CO (occurrence: CO)
  Receive Date: 20230208
  Receipt Date: 20230208
  Transmission Date: 20230417
  Serious: Yes (Hospitalization, Other)
  Sender: FDA-Public Use
  Company Number: CO-ABBVIE-4298450

PATIENT
  Age: 67 Year
  Sex: Male

DRUGS (1)
  1. ZEMPLAR [Suspect]
     Active Substance: PARICALCITOL
     Indication: Chronic kidney disease
     Dosage: FREQUENCY TEXT: POSTDIALYSIS
     Route: 042
     Dates: start: 20221115, end: 20230125

REACTIONS (3)
  - Fistula [Recovering/Resolving]
  - Thrombosis [Recovering/Resolving]
  - Catheter placement [Recovering/Resolving]

NARRATIVE: CASE EVENT DATE: 20230101
